FAERS Safety Report 16043828 (Version 1)
Quarter: 2019Q1

REPORT INFORMATION
  Report Type: Report from Study
  Country: NL (occurrence: NL)
  Receive Date: 20190306
  Receipt Date: 20190306
  Transmission Date: 20190418
  Serious: Yes (Other)
  Sender: FDA-Public Use
  Company Number: NL-PFIZER INC-2019091270

PATIENT
  Age: 85 Year
  Sex: Female
  Weight: 66 kg

DRUGS (12)
  1. METFORMIN [Concomitant]
     Active Substance: METFORMIN HYDROCHLORIDE
     Dosage: 2 DF, 1X/DAY
     Route: 048
  2. IBUPROFEN. [Suspect]
     Active Substance: IBUPROFEN
     Dosage: UNK
     Route: 065
  3. DARBEPOETIN ALFA [Concomitant]
     Active Substance: DARBEPOETIN ALFA
     Dosage: 1 DF, UNK
  4. GLICLAZIDE [Concomitant]
     Active Substance: GLICLAZIDE
     Dosage: 1 DF, 1X/DAY
     Route: 048
  5. COLECALCIFEROL [Concomitant]
     Active Substance: CHOLECALCIFEROL
     Dosage: UNK
     Route: 048
  6. PARACETAMOL [Concomitant]
     Active Substance: ACETAMINOPHEN
     Dosage: 4 DF, 1X/DAY
     Route: 048
  7. LERCANIDIPINE [Concomitant]
     Active Substance: LERCANIDIPINE
     Dosage: 1 DF, 1X/DAY
     Route: 048
  8. PERINDOPRIL + INDAPAMIDA TAD [Concomitant]
     Dosage: 1 DF, 1X/DAY
     Route: 048
  9. TERIPARATIDE [Suspect]
     Active Substance: TERIPARATIDE
     Indication: OSTEOPOROSIS
     Dosage: 20 UG, 1X/DAY
     Route: 058
     Dates: start: 20180705, end: 20181127
  10. PLANTAGO OVATA [Concomitant]
     Active Substance: HERBALS\PLANTAGO OVATA LEAF
     Dosage: 1 DF, 1X/DAY
     Route: 048
  11. LEVOTHYROXINE. [Concomitant]
     Active Substance: LEVOTHYROXINE
     Dosage: 1 DF, 1X/DAY
     Route: 048
  12. SIMVASTATINE [Concomitant]
     Active Substance: SIMVASTATIN
     Dosage: 1 DF, 1X/DAY
     Route: 048

REACTIONS (1)
  - Renal impairment [Not Recovered/Not Resolved]
